FAERS Safety Report 5921482-X (Version None)
Quarter: 2008Q4

REPORT INFORMATION
  Report Type: 
  Country: None (occurrence: None)
  Receive Date: 20081016
  Receipt Date: 20081016
  Transmission Date: 20090506
  Serious: Yes (Life-Threatening, Hospitalization)
  Sender: FDA-Public Use
  Company Number: None

PATIENT
  Age: 39 Year
  Sex: Male
  Weight: 86.1834 kg

DRUGS (2)
  1. VERAPAMIL EXTENDED-RELEASE [Suspect]
     Indication: CLUSTER HEADACHE
     Dosage: 240MG 1 Q DAY PO
     Route: 048
     Dates: start: 20080918
  2. PREDNISONE [Suspect]
     Indication: CLUSTER HEADACHE
     Dosage: 10MG 3 BID TAPER DOSE PO
     Route: 048
     Dates: start: 20080918

REACTIONS (5)
  - ARRHYTHMIA [None]
  - BLOOD POTASSIUM DECREASED [None]
  - EXTRASYSTOLES [None]
  - FLUSHING [None]
  - PARALYSIS [None]
